FAERS Safety Report 8744553 (Version 3)
Quarter: 2013Q1

REPORT INFORMATION
  Report Type: Spontaneous
  Country: US (occurrence: US)
  Receive Date: 20120825
  Receipt Date: 20130219
  Transmission Date: 20140127
  Serious: No
  Sender: FDA-Public Use
  Company Number: US-009507513-1208USA007343

PATIENT
  Age: 20 None
  Sex: Female

DRUGS (1)
  1. IMPLANON [Suspect]
     Dosage: UNK
     Route: 058
     Dates: start: 20120807, end: 20120808

REACTIONS (4)
  - Device expulsion [Unknown]
  - Medical device complication [Unknown]
  - No adverse event [Unknown]
  - Product quality issue [Unknown]
